FAERS Safety Report 17892413 (Version 1)
Quarter: 2020Q2

REPORT INFORMATION
  Report Type: Other
  Country: US (occurrence: US)
  Receive Date: 20200613
  Receipt Date: 20200613
  Transmission Date: 20200714
  Serious: Yes (Death)
  Sender: FDA-Public Use
  Company Number: US-NUVO PHARMACEUTICALS INC-2085752

PATIENT
  Age: 51 Year
  Sex: Female

DRUGS (8)
  1. PAROXETINE. [Concomitant]
     Active Substance: PAROXETINE
     Route: 065
  2. TRAZODONE [Concomitant]
     Active Substance: TRAZODONE HYDROCHLORIDE
     Route: 065
  3. METACHLOROPHENYLPIPERAZINE [M-CPP] [Concomitant]
     Route: 065
  4. OXYCODONE-ACETAMINOPHEN [Concomitant]
     Active Substance: ACETAMINOPHEN\OXYCODONE HYDROCHLORIDE
     Route: 065
  5. OXYMORPHONE HYDROCHLORIDE. [Concomitant]
     Active Substance: OXYMORPHONE HYDROCHLORIDE
  6. OXYCODONE HYDROCHLORIDE. [Suspect]
     Active Substance: OXYCODONE HYDROCHLORIDE
     Indication: PRODUCT USED FOR UNKNOWN INDICATION
     Route: 065
  7. ZOLPIDEM [Concomitant]
     Active Substance: ZOLPIDEM TARTRATE
     Route: 065
  8. GABAPENTIN. [Suspect]
     Active Substance: GABAPENTIN
     Route: 065

REACTIONS (2)
  - Toxicity to various agents [Fatal]
  - Accidental death [Fatal]
